FAERS Safety Report 19442448 (Version 1)
Quarter: 2021Q2

REPORT INFORMATION
  Report Type: Spontaneous
  Country: US (occurrence: US)
  Receive Date: 20210618
  Receipt Date: 20210618
  Transmission Date: 20210717
  Serious: Yes (Hospitalization)
  Sender: FDA-Public Use
  Company Number: None

PATIENT
  Age: 45 Year
  Sex: Female

DRUGS (16)
  1. IBUPROFEN. [Concomitant]
     Active Substance: IBUPROFEN
  2. ONDANSETRON [Suspect]
     Active Substance: ONDANSETRON
  3. POT CITRATE [Concomitant]
     Active Substance: POTASSIUM CITRATE
  4. MAGNESIUM OX [Concomitant]
  5. PANTROPRAZOLE [Concomitant]
  6. TIZANIDINE. [Concomitant]
     Active Substance: TIZANIDINE
  7. ALBUTEROL. [Concomitant]
     Active Substance: ALBUTEROL
  8. HYDRALAZINE [Concomitant]
     Active Substance: HYDRALAZINE HYDROCHLORIDE
  9. TRAMADIK HCL [Concomitant]
  10. VIRTUSSIN [Concomitant]
  11. DROXIDOPA 100MG [Suspect]
     Active Substance: DROXIDOPA
     Indication: AUTONOMIC NEUROPATHY
  12. BENZONATE [Concomitant]
     Active Substance: BENZONATATE
  13. CLOBETASOL [Concomitant]
     Active Substance: CLOBETASOL
  14. PREDNISONE. [Concomitant]
     Active Substance: PREDNISONE
  15. AMLODIPINE [Concomitant]
     Active Substance: AMLODIPINE BESYLATE
  16. MIDODRINE [Concomitant]
     Active Substance: MIDODRINE

REACTIONS (5)
  - Nausea [None]
  - Vomiting [None]
  - Headache [None]
  - Neuropathy peripheral [None]
  - Labile blood pressure [None]

NARRATIVE: CASE EVENT DATE: 20210401
